FAERS Safety Report 18536878 (Version 3)
Quarter: 2021Q1

REPORT INFORMATION
  Report Type: Report from Study
  Country: US (occurrence: US)
  Receive Date: 20201123
  Receipt Date: 20210316
  Transmission Date: 20210419
  Serious: Yes (Other)
  Sender: FDA-Public Use
  Company Number: US-JAZZ-2020-US-015424

PATIENT
  Age: 40 Year
  Sex: Female

DRUGS (6)
  1. DIPHENHYDRAMINE HYDROCHLORIDE. [Suspect]
     Active Substance: DIPHENHYDRAMINE HYDROCHLORIDE
     Indication: RASH
     Dosage: UNK
     Dates: start: 202011, end: 202011
  2. CLARITIN [Concomitant]
     Active Substance: LORATADINE
     Indication: PRODUCT USED FOR UNKNOWN INDICATION
  3. IBU [Concomitant]
     Active Substance: IBUPROFEN
     Indication: PRODUCT USED FOR UNKNOWN INDICATION
  4. XYREM [Suspect]
     Active Substance: SODIUM OXYBATE
     Dosage: 3 GRAM, BID
     Route: 048
     Dates: start: 201908
  5. XYREM [Suspect]
     Active Substance: SODIUM OXYBATE
     Indication: NARCOLEPSY
     Dosage: 2.25 GRAM, BID
     Route: 048
     Dates: start: 201907, end: 201907
  6. TYLENOL EXTRA STRENGTH [Concomitant]
     Active Substance: ACETAMINOPHEN
     Indication: PRODUCT USED FOR UNKNOWN INDICATION

REACTIONS (9)
  - Fatigue [Not Recovered/Not Resolved]
  - Rheumatoid factor positive [Unknown]
  - Sedation [Unknown]
  - Nephrolithiasis [Not Recovered/Not Resolved]
  - Stress fracture [Unknown]
  - Diverticulitis [Unknown]
  - Dental caries [Not Recovered/Not Resolved]
  - Surgery [Unknown]
  - Arthritis [Unknown]

NARRATIVE: CASE EVENT DATE: 202011
